FAERS Safety Report 4961579-4 (Version None)
Quarter: 2006Q1

REPORT INFORMATION
  Report Type: 
  Country: None (occurrence: None)
  Receive Date: 20060201
  Receipt Date: 20051028
  Transmission Date: 20060701
  Serious: No
  Sender: FDA-Public Use
  Company Number: 2005PV003844

PATIENT
  Age: 64 Year
  Sex: Male
  Weight: 116.1208 kg

DRUGS (6)
  1. BYETTA [Suspect]
     Indication: DIABETES MELLITUS NON-INSULIN-DEPENDENT
     Dosage: 5 MCG;BID;SC
     Route: 058
     Dates: start: 20051020, end: 20051026
  2. GLUCOTROL XL [Concomitant]
  3. STARLIX [Concomitant]
  4. LANTUS [Concomitant]
  5. ACARBOSE [Concomitant]
  6. METFORMIN [Concomitant]

REACTIONS (5)
  - ABDOMINAL PAIN UPPER [None]
  - BACK PAIN [None]
  - HICCUPS [None]
  - INJECTION SITE BRUISING [None]
  - VOMITING [None]
